FAERS Safety Report 16034649 (Version 1)
Quarter: 2019Q1

REPORT INFORMATION
  Report Type: Spontaneous
  Country: US (occurrence: US)
  Receive Date: 20190305
  Receipt Date: 20190305
  Transmission Date: 20190418
  Serious: No
  Sender: FDA-Public Use
  Company Number: US-TEVA-2019-US-1019746

PATIENT
  Sex: Female

DRUGS (4)
  1. TRIAMCINOLONE OINTMENT STEROID CREAM [Suspect]
     Active Substance: TRIAMCINOLONE
     Route: 065
  2. LYRICA [Concomitant]
     Active Substance: PREGABALIN
     Indication: HEADACHE
     Dates: start: 201708
  3. LOTRIMIN [Concomitant]
     Active Substance: CLOTRIMAZOLE
     Indication: ANTIFUNGAL TREATMENT
  4. LYRICA [Concomitant]
     Active Substance: PREGABALIN
     Indication: NECK PAIN
     Dosage: 100 MILLIGRAM DAILY;

REACTIONS (1)
  - Drug effect decreased [Unknown]
